FAERS Safety Report 22081760 (Version 1)
Quarter: 2023Q1

REPORT INFORMATION
  Report Type: Other
  Country: FR (occurrence: FR)
  Receive Date: 20230310
  Receipt Date: 20230310
  Transmission Date: 20230417
  Serious: Yes (Hospitalization)
  Sender: FDA-Public Use
  Company Number: None

PATIENT

DRUGS (2)
  1. DICLOFENAC [Suspect]
     Active Substance: DICLOFENAC
     Indication: Pain
     Dosage: 1 DOSAGE FORM, QD
     Route: 003
     Dates: start: 20220504, end: 20220505
  2. AUGMENTIN [Concomitant]
     Active Substance: AMOXICILLIN\CLAVULANATE POTASSIUM
     Indication: Antibiotic prophylaxis
     Dosage: 1 GRAM EVERY 8 HRS
     Route: 048
     Dates: start: 20220505, end: 20220509

REACTIONS (1)
  - Mediastinitis [Recovered/Resolved]

NARRATIVE: CASE EVENT DATE: 20220509
